FAERS Safety Report 13972352 (Version 4)
Quarter: 2018Q2

REPORT INFORMATION
  Report Type: Spontaneous
  Country: US (occurrence: US)
  Receive Date: 20170914
  Receipt Date: 20180620
  Transmission Date: 20180711
  Serious: No
  Sender: FDA-Public Use
  Company Number: US-INCYTE CORPORATION-2017IN007626

PATIENT

DRUGS (2)
  1. JAKAFI [Suspect]
     Active Substance: RUXOLITINIB
     Dosage: 25 MG, BID
     Route: 048
     Dates: start: 20160725
  2. JAKAFI [Suspect]
     Active Substance: RUXOLITINIB
     Indication: MYELOFIBROSIS
     Dosage: 20 MG, BID
     Route: 048
     Dates: start: 20160818

REACTIONS (7)
  - Ear infection [Recovered/Resolved]
  - Alopecia [Not Recovered/Not Resolved]
  - Nasal discomfort [Unknown]
  - Muscle strain [Recovered/Resolved]
  - Head discomfort [Unknown]
  - Oropharyngeal pain [Unknown]
  - White blood cell count increased [Recovering/Resolving]

NARRATIVE: CASE EVENT DATE: 2017
